FAERS Safety Report 10182825 (Version 1)
Quarter: 2014Q2

REPORT INFORMATION
  Report Type: Spontaneous
  Country: US (occurrence: US)
  Receive Date: 20140520
  Receipt Date: 20140520
  Transmission Date: 20141212
  Serious: No
  Sender: FDA-Public Use
  Company Number: US-PFIZER INC-2014134254

PATIENT
  Age: 6 Year
  Sex: Female
  Weight: 63.49 kg

DRUGS (2)
  1. TETRACYCLINE HCL [Suspect]
     Indication: ARACHNOIDITIS
     Dosage: UNK
     Route: 042
     Dates: start: 1977
  2. TETRACYCLINE HCL [Suspect]
     Indication: SCARLET FEVER

REACTIONS (4)
  - Tooth disorder [Not Recovered/Not Resolved]
  - Tooth loss [Not Recovered/Not Resolved]
  - Tooth discolouration [Not Recovered/Not Resolved]
  - Tooth injury [Not Recovered/Not Resolved]
